FAERS Safety Report 6831651-2 (Version None)
Quarter: 2010Q3

REPORT INFORMATION
  Report Type: 
  Country: None (occurrence: None)
  Receive Date: 20100706
  Receipt Date: 20100630
  Transmission Date: 20110219
  Serious: Yes (Death)
  Sender: FDA-Public Use
  Company Number: 2010SP029611

PATIENT
  Age: 42 Year
  Sex: Female
  Weight: 83 kg

DRUGS (11)
  1. TEMODAL [Suspect]
     Indication: GLIOBLASTOMA
     Dosage: 140 MG;QD;PO
     Dates: start: 20100104, end: 20100204
  2. KEPPRA [Concomitant]
  3. SOLUPRED [Concomitant]
  4. NEXIUM [Concomitant]
  5. TENORMIN [Concomitant]
  6. LOVENOX [Concomitant]
  7. LASIX [Concomitant]
  8. LASIX [Concomitant]
  9. DIFFU K [Concomitant]
  10. LEXOMIL [Concomitant]
  11. TOPALGIC [Concomitant]

REACTIONS (2)
  - BONE MARROW FAILURE [None]
  - PYREXIA [None]
